FAERS Safety Report 6695795-0 (Version None)
Quarter: 2010Q2

REPORT INFORMATION
  Report Type: 
  Country: None (occurrence: None)
  Receive Date: 20100423
  Receipt Date: 20100423
  Transmission Date: 20101027
  Serious: No
  Sender: FDA-Public Use
  Company Number: None

PATIENT
  Age: 46 Year
  Sex: Female
  Weight: 86.1834 kg

DRUGS (1)
  1. LEVAQUIN [Suspect]
     Indication: TRACHEOBRONCHITIS
     Dosage: 750 MG DAILY PO
     Route: 048

REACTIONS (4)
  - JOINT LOCK [None]
  - PAIN IN EXTREMITY [None]
  - TENDON DISORDER [None]
  - TRIGGER FINGER [None]
